FAERS Safety Report 7040421-4 (Version None)
Quarter: 2010Q4

REPORT INFORMATION
  Report Type: 
  Country: None (occurrence: None)
  Receive Date: 20101012
  Receipt Date: 20101005
  Transmission Date: 20110411
  Serious: Yes (Hospitalization)
  Sender: FDA-Public Use
  Company Number: US-GILEAD-2010-0032377

PATIENT
  Sex: Female
  Weight: 52.21 kg

DRUGS (8)
  1. LETAIRIS [Suspect]
     Indication: PULMONARY ARTERIAL HYPERTENSION
     Route: 048
     Dates: start: 20100310
  2. DULCOLAX [Concomitant]
  3. ALKA SELTZER [Concomitant]
  4. HYDROXYCHLOROQUINE [Concomitant]
  5. KLOR-CON [Concomitant]
  6. MECLIZINE [Concomitant]
  7. METAXALONE [Concomitant]
  8. THEOPHYLLINE [Concomitant]

REACTIONS (2)
  - ANAEMIA [None]
  - DIVERTICULITIS INTESTINAL HAEMORRHAGIC [None]
